FAERS Safety Report 9454195 (Version 1)
Quarter: 2013Q3

REPORT INFORMATION
  Report Type: Spontaneous
  Country: US (occurrence: US)
  Receive Date: 20130812
  Receipt Date: 20130812
  Transmission Date: 20140515
  Serious: No
  Sender: FDA-Public Use
  Company Number: US-BAYER-2013-097270

PATIENT
  Age: 4 Month
  Sex: Male

DRUGS (1)
  1. SKYLA [Suspect]
     Dosage: UNK
     Route: 063
     Dates: start: 201306

REACTIONS (2)
  - Change of bowel habit [None]
  - Exposure during breast feeding [None]
